FAERS Safety Report 13292215 (Version 5)
Quarter: 2017Q2

REPORT INFORMATION
  Report Type: Report from Study
  Country: CA (occurrence: CA)
  Receive Date: 20170303
  Receipt Date: 20170627
  Transmission Date: 20170830
  Serious: Yes (Hospitalization, Other)
  Sender: FDA-Public Use
  Company Number: CA-JNJFOC-20161226381

PATIENT
  Age: 82 Year
  Sex: Male

DRUGS (2)
  1. DARZALEX [Suspect]
     Active Substance: DARATUMUMAB
     Indication: PLASMA CELL MYELOMA
     Route: 042
     Dates: start: 20161228, end: 201703
  2. DARZALEX [Suspect]
     Active Substance: DARATUMUMAB
     Indication: PLASMA CELL MYELOMA
     Dosage: DOSE 5 WAS RECEIVED
     Route: 042
     Dates: start: 201703, end: 20170519

REACTIONS (15)
  - Troponin increased [Recovering/Resolving]
  - Feeling abnormal [Recovering/Resolving]
  - Atrial fibrillation [Unknown]
  - Haemoglobin decreased [Recovering/Resolving]
  - Haemorrhage [Recovering/Resolving]
  - Chest pain [Recovering/Resolving]
  - Nausea [Recovering/Resolving]
  - Renal disorder [Unknown]
  - Blood creatinine increased [Recovering/Resolving]
  - Pneumonia [Recovering/Resolving]
  - Haematochezia [Recovering/Resolving]
  - Viral upper respiratory tract infection [Recovering/Resolving]
  - Drug ineffective [Unknown]
  - Rectal haemorrhage [Recovering/Resolving]
  - Diarrhoea [Recovering/Resolving]

NARRATIVE: CASE EVENT DATE: 20161228
